FAERS Safety Report 14524213 (Version 1)
Quarter: 2018Q1

REPORT INFORMATION
  Report Type: Spontaneous
  Country: GB (occurrence: GB)
  Receive Date: 20180213
  Receipt Date: 20180213
  Transmission Date: 20180509
  Serious: Yes (Hospitalization)
  Sender: FDA-Public Use
  Company Number: GB-CONCORDIA PHARMACEUTICALS INC.-E2B_00009834

PATIENT
  Age: 68 Year
  Sex: Male

DRUGS (11)
  1. RAMIPRIL. [Suspect]
     Active Substance: RAMIPRIL
     Dosage: MORNING
  2. PARACETAMOL [Suspect]
     Active Substance: ACETAMINOPHEN
     Dosage: FOUR TIMES A DAY.; AS REQUIRED
  3. SIMVASTATIN. [Suspect]
     Active Substance: SIMVASTATIN
     Dosage: AT NIGHT.
  4. COLECALCIFEROL [Suspect]
     Active Substance: CHOLECALCIFEROL
     Dosage: MORNING
  5. DIGOXIN. [Suspect]
     Active Substance: DIGOXIN
     Dosage: MORNING
  6. GABAPENTIN. [Suspect]
     Active Substance: GABAPENTIN
  7. BISOPROLOL [Suspect]
     Active Substance: BISOPROLOL
  8. DIHYDROCODEINE [Suspect]
     Active Substance: DIHYDROCODEINE
     Dosage: THREE TIMES A DAY; AS REQUIRED
  9. LANSOPRAZOLE. [Suspect]
     Active Substance: LANSOPRAZOLE
     Dosage: MORNING
  10. TAMSULOSIN HYDROCHLORIDE. [Suspect]
     Active Substance: TAMSULOSIN HYDROCHLORIDE
  11. XARELTO [Suspect]
     Active Substance: RIVAROXABAN
     Indication: ATRIAL FIBRILLATION
     Dosage: MORNING

REACTIONS (1)
  - Cerebral infarction [Not Recovered/Not Resolved]
